FAERS Safety Report 8976629 (Version 3)
Quarter: 2013Q1

REPORT INFORMATION
  Report Type: Spontaneous
  Country: US (occurrence: US)
  Receive Date: 20121220
  Receipt Date: 20130304
  Transmission Date: 20140127
  Serious: Yes (Hospitalization)
  Sender: FDA-Public Use
  Company Number: US-ELI_LILLY_AND_COMPANY-US201212004532

PATIENT
  Age: 70 Year
  Sex: Female

DRUGS (15)
  1. FORTEO [Suspect]
     Indication: OSTEOPOROSIS
     Dosage: 20 UG, QD
  2. FORTEO [Suspect]
     Dosage: 20 UG, QD
  3. PREDNISONE [Concomitant]
     Dosage: 20 MG, QD
  4. CYMBALTA [Concomitant]
     Dosage: 60 MG, QD
  5. VITAMIN E [Concomitant]
     Dosage: 1000 MG, QD
  6. VITAMIN D [Concomitant]
     Dosage: 1000 MG, QD
  7. VITAMIN C [Concomitant]
     Dosage: 1000 MG, QD
  8. IRON [Concomitant]
     Dosage: 65 MG, QD
  9. AMLODIPINE [Concomitant]
     Dosage: 5 MG, QD
  10. LISINOPRIL [Concomitant]
     Dosage: 10 MG, QD
  11. LEFLUNOMIDE [Concomitant]
     Dosage: 20 MG, QD
  12. GABAPENTIN [Concomitant]
     Dosage: 900 MG, QD
  13. TRAMADOL [Concomitant]
     Dosage: 200 MG, TID
  14. LOVASTATIN [Concomitant]
     Dosage: 20 MG, QD
  15. SINGULAIR [Concomitant]
     Dosage: 10 MG, QD

REACTIONS (7)
  - Pneumonia [Recovering/Resolving]
  - Dehydration [Recovering/Resolving]
  - Arthritis [Unknown]
  - Pain in jaw [Unknown]
  - Ear pain [Unknown]
  - Mobility decreased [Unknown]
  - Cerumen impaction [Unknown]
